FAERS Safety Report 21410830 (Version 1)
Quarter: 2022Q4

REPORT INFORMATION
  Report Type: Spontaneous
  Country: JP (occurrence: JP)
  Receive Date: 20221005
  Receipt Date: 20221005
  Transmission Date: 20230113
  Serious: Yes (Death, Hospitalization, Other)
  Sender: FDA-Public Use
  Company Number: JP-MSD-M2022-41986

PATIENT
  Age: 79 Year
  Sex: Male

DRUGS (1)
  1. KEYTRUDA [Suspect]
     Active Substance: PEMBROLIZUMAB
     Indication: Bladder cancer
     Dosage: 200 MILLIGRAM, Q3W
     Route: 041

REACTIONS (4)
  - Septic shock [Fatal]
  - Peripheral motor neuropathy [Fatal]
  - Guillain-Barre syndrome [Fatal]
  - Urinary tract infection [Unknown]
